FAERS Safety Report 5044942-5 (Version None)
Quarter: 2006Q2

REPORT INFORMATION
  Report Type: 
  Country: None (occurrence: None)
  Receive Date: 20060601
  Receipt Date: 20060321
  Transmission Date: 20061013
  Serious: No
  Sender: FDA-Public Use
  Company Number: US200603005986

PATIENT
  Age: 17 Year
  Sex: Female

DRUGS (2)
  1. CYMBALTA [Suspect]
     Indication: ANXIETY
     Dosage: 30 MG
     Dates: start: 20060301, end: 20060301
  2. PROZAC [Suspect]
     Indication: ANXIETY

REACTIONS (3)
  - HALLUCINATION [None]
  - HYPERHIDROSIS [None]
  - POOR QUALITY SLEEP [None]
